FAERS Safety Report 5773803-9 (Version None)
Quarter: 2008Q2

REPORT INFORMATION
  Report Type: 
  Country: None (occurrence: None)
  Receive Date: 20080616
  Receipt Date: 20080605
  Transmission Date: 20081010
  Serious: Yes (Hospitalization)
  Sender: FDA-Public Use
  Company Number: EC-BAXTER-2008BH005272

PATIENT
  Age: 13 Year
  Sex: Female

DRUGS (2)
  1. DIANEAL [Suspect]
     Indication: RENAL FAILURE
     Route: 033
     Dates: start: 20080401, end: 20080101
  2. METICORTEN [Concomitant]
     Indication: SYSTEMIC LUPUS ERYTHEMATOSUS
     Dosage: DOSE UNIT:UNKNOWN
     Route: 065

REACTIONS (2)
  - FUNGAL PERITONITIS [None]
  - THERAPEUTIC PRODUCT CONTAMINATION [None]
